FAERS Safety Report 10147503 (Version 2)
Quarter: 2014Q2

REPORT INFORMATION
  Report Type: Report from Study
  Country: US (occurrence: US)
  Receive Date: 20140501
  Receipt Date: 20140520
  Transmission Date: 20141212
  Serious: Yes (Hospitalization)
  Sender: FDA-Public Use
  Company Number: US-ACTELION-A-NJ2014-98038

PATIENT
  Age: 65 Year
  Sex: Female

DRUGS (2)
  1. TRACLEER [Suspect]
     Indication: SYSTEMIC SCLEROSIS
     Dosage: UNK
     Route: 048
  2. REMODULIN [Concomitant]

REACTIONS (3)
  - Cardiac disorder [Unknown]
  - Loss of consciousness [Unknown]
  - Cardiac pacemaker insertion [Unknown]
